FAERS Safety Report 16775889 (Version 2)
Quarter: 2019Q3

REPORT INFORMATION
  Report Type: Spontaneous
  Country: US (occurrence: US)
  Receive Date: 20190905
  Receipt Date: 20190925
  Transmission Date: 20191005
  Serious: Yes (Other)
  Sender: FDA-Public Use
  Company Number: US-JNJFOC-20190903897

PATIENT
  Age: 60 Year
  Sex: Male

DRUGS (1)
  1. IMBRUVICA [Suspect]
     Active Substance: IBRUTINIB
     Indication: PRODUCT USED FOR UNKNOWN INDICATION
     Dosage: 420 MG, UNK
     Route: 048

REACTIONS (4)
  - Memory impairment [Recovering/Resolving]
  - Weight decreased [Not Recovered/Not Resolved]
  - Neoplasm malignant [Unknown]
  - Product dose omission [Unknown]

NARRATIVE: CASE EVENT DATE: 201908
